FAERS Safety Report 4369278-7 (Version None)
Quarter: 2004Q2

REPORT INFORMATION
  Report Type: 
  Country: None (occurrence: None)
  Receive Date: 20040525
  Receipt Date: 20040512
  Transmission Date: 20050107
  Serious: No
  Sender: FDA-Public Use
  Company Number: 2004UW06920

PATIENT
  Age: 86 Year
  Sex: Male
  Weight: 62.5964 kg

DRUGS (1)
  1. CRESTOR [Suspect]
     Indication: HYPERLIPIDAEMIA
     Dosage: 10 MG QD PO
     Route: 048

REACTIONS (3)
  - BLISTER [None]
  - MUSCLE CRAMP [None]
  - MYALGIA [None]
